FAERS Safety Report 19579383 (Version 1)
Quarter: 2021Q3

REPORT INFORMATION
  Report Type: Spontaneous
  Country: US (occurrence: US)
  Receive Date: 20210719
  Receipt Date: 20210719
  Transmission Date: 20211014
  Serious: No
  Sender: FDA-Public Use
  Company Number: US-NOVOPROD-777268

PATIENT
  Sex: Male

DRUGS (2)
  1. OZEMPIC [Suspect]
     Active Substance: SEMAGLUTIDE
     Indication: PRODUCT USED FOR UNKNOWN INDICATION
     Dosage: 0.25 MG, QW
     Route: 058
  2. OZEMPIC [Suspect]
     Active Substance: SEMAGLUTIDE
     Dosage: 0.5 MG
     Route: 058

REACTIONS (6)
  - Abdominal discomfort [Recovering/Resolving]
  - Constipation [Recovered/Resolved]
  - Nausea [Unknown]
  - Inappropriate schedule of product administration [Recovered/Resolved]
  - Pruritus [Not Recovered/Not Resolved]
  - Product label confusion [Recovered/Resolved]
